FAERS Safety Report 6875008-7 (Version None)
Quarter: 2010Q3

REPORT INFORMATION
  Report Type: 
  Country: None (occurrence: None)
  Receive Date: 20100727
  Receipt Date: 20100722
  Transmission Date: 20110219
  Serious: Yes (Other)
  Sender: FDA-Public Use
  Company Number: US-B.I. PHARMACEUTICALS,INC./RIDGEFIELD-2010-BP-03631BP

PATIENT
  Sex: Male

DRUGS (8)
  1. SPIRIVA [Suspect]
     Indication: CHRONIC OBSTRUCTIVE PULMONARY DISEASE
     Dosage: 18 MCG
     Route: 055
     Dates: start: 20080901
  2. OMEPRAZOLE [Concomitant]
     Indication: GASTROOESOPHAGEAL REFLUX DISEASE
     Dosage: 20 MG
     Route: 048
  3. HYDROCHLOROTHIAZIDE [Concomitant]
     Indication: HYPERTENSION
     Dosage: 25 MG
     Route: 048
  4. FUROSEMIDE [Concomitant]
     Indication: JOINT SWELLING
     Dosage: 80 MG
     Route: 048
  5. ALLOPURINOL [Concomitant]
     Indication: GOUT
     Route: 048
  6. TERAZOSIN HCL [Concomitant]
  7. DILTIAZEM [Concomitant]
     Indication: HYPERTENSION
     Dosage: 360 MG
     Route: 048
  8. MEDICATION NOT OTHEWISE SPECIFIED [Concomitant]
     Indication: GLAUCOMA

REACTIONS (5)
  - DRY MOUTH [None]
  - MULTIPLE MYELOMA [None]
  - OROPHARYNGEAL PAIN [None]
  - PHARYNGEAL OEDEMA [None]
  - RENAL FAILURE [None]
